FAERS Safety Report 20613630 (Version 12)
Quarter: 2022Q3

REPORT INFORMATION
  Report Type: Report from Study
  Country: US (occurrence: US)
  Receive Date: 20220319
  Receipt Date: 20220926
  Transmission Date: 20221027
  Serious: Yes (Hospitalization)
  Sender: FDA-Public Use
  Company Number: US-NOVARTISTESTPH-NVSC2022US063086

PATIENT
  Sex: Female

DRUGS (6)
  1. ENTRESTO [Suspect]
     Active Substance: SACUBITRIL\VALSARTAN
     Indication: Product used for unknown indication
     Dosage: 1 DOSAGE FORM, BID (97/103 MG)
     Route: 048
  2. ENTRESTO [Suspect]
     Active Substance: SACUBITRIL\VALSARTAN
     Dosage: UNK
     Route: 065
     Dates: start: 20220509
  3. ENTRESTO [Suspect]
     Active Substance: SACUBITRIL\VALSARTAN
     Dosage: UNK
     Route: 065
     Dates: start: 20220523
  4. ENTRESTO [Suspect]
     Active Substance: SACUBITRIL\VALSARTAN
     Dosage: UNK
     Route: 065
  5. WARFARIN [Concomitant]
     Active Substance: WARFARIN
     Indication: Product used for unknown indication
     Dosage: UNK
     Route: 065
  6. ATIVAN [Concomitant]
     Active Substance: LORAZEPAM
     Indication: Anxiety
     Dosage: UNK (FORMULATION IV)
     Route: 042
     Dates: start: 20220423, end: 20220423

REACTIONS (19)
  - Fall [Unknown]
  - Memory impairment [Unknown]
  - Dyspnoea [Recovered/Resolved]
  - Head injury [Unknown]
  - Haemorrhage [Unknown]
  - Contusion [Unknown]
  - Extremity necrosis [Unknown]
  - Skin ulcer [Not Recovered/Not Resolved]
  - Poor peripheral circulation [Unknown]
  - Arterial occlusive disease [Unknown]
  - Peripheral swelling [Unknown]
  - Blood sodium decreased [Unknown]
  - Arthralgia [Unknown]
  - Myalgia [Unknown]
  - Cough [Recovering/Resolving]
  - Pain in extremity [Unknown]
  - Diarrhoea [Recovered/Resolved]
  - Impaired healing [Unknown]
  - Therapeutic response unexpected [Unknown]
